FAERS Safety Report 4811793-3 (Version None)
Quarter: 2005Q4

REPORT INFORMATION
  Report Type: 
  Country: None (occurrence: None)
  Receive Date: 20051026
  Receipt Date: 20051012
  Transmission Date: 20060501
  Serious: Yes (Death, Life-Threatening, Hospitalization, Disabling, Other)
  Sender: FDA-Public Use
  Company Number: EWC050544137

PATIENT
  Age: 55 Year
  Sex: Male
  Weight: 50 kg

DRUGS (14)
  1. PEMETREXED [Suspect]
     Indication: MESOTHELIOMA
     Dosage: 750 MG/1 OTHER
     Route: 011
     Dates: start: 20050511
  2. CARBOPLATIN [Suspect]
     Indication: MESOTHELIOMA
     Dosage: 453 MG/1 OTHER
     Route: 042
     Dates: start: 20050511
  3. ZALDIAR [Concomitant]
  4. LORAZEPAM [Concomitant]
  5. CITALOPRAM [Concomitant]
  6. ATROVENT [Concomitant]
  7. NEXIAM (ESOMEPRAZOLE) [Concomitant]
  8. FOLAVIT (FOLIC ACID) [Concomitant]
  9. MEDROL [Concomitant]
  10. FLIXOTIDE (FLUTICASONE PROPIONATE) [Concomitant]
  11. DUOVENT [Concomitant]
  12. FORADIL [Concomitant]
  13. VITAMIN B-12 [Concomitant]
  14. DEXAMETHASONE [Concomitant]

REACTIONS (22)
  - BLOOD CALCIUM INCREASED [None]
  - BLOOD CHLORIDE DECREASED [None]
  - BLOOD CULTURE POSITIVE [None]
  - BLOOD FIBRINOGEN INCREASED [None]
  - BLOOD LACTATE DEHYDROGENASE INCREASED [None]
  - BLOOD SODIUM DECREASED [None]
  - BLOOD UREA INCREASED [None]
  - C-REACTIVE PROTEIN INCREASED [None]
  - CAMPYLOBACTER INFECTION [None]
  - DIARRHOEA [None]
  - EOSINOPHIL COUNT DECREASED [None]
  - HAEMATOCRIT DECREASED [None]
  - HAEMOGLOBIN DECREASED [None]
  - HYPOXIA [None]
  - ILEITIS [None]
  - LYMPHOCYTE COUNT DECREASED [None]
  - MUCOSAL INFLAMMATION [None]
  - NEUTROPHIL COUNT INCREASED [None]
  - PROTEIN URINE PRESENT [None]
  - RED BLOOD CELL COUNT INCREASED [None]
  - RENAL IMPAIRMENT [None]
  - SEPTIC SHOCK [None]
